FAERS Safety Report 14079594 (Version 3)
Quarter: 2018Q2

REPORT INFORMATION
  Report Type: Spontaneous
  Country: IT (occurrence: IT)
  Receive Date: 20171012
  Receipt Date: 20180422
  Transmission Date: 20180711
  Serious: Yes (Hospitalization, Other)
  Sender: FDA-Public Use
  Company Number: IT-APOTEX-2017AP019711

PATIENT
  Age: 38 Year
  Sex: Female

DRUGS (5)
  1. SEREUPIN [Suspect]
     Active Substance: PAROXETINE HYDROCHLORIDE
     Indication: PRODUCT USED FOR UNKNOWN INDICATION
     Dosage: 1 DF, SINGLE, UNIT
     Route: 048
     Dates: start: 20170612, end: 20170612
  2. MORPHINE SULFATE. [Suspect]
     Active Substance: MORPHINE SULFATE
     Indication: PRODUCT USED FOR UNKNOWN INDICATION
     Dosage: 1 DF, SINGLE, UNIT
     Route: 048
     Dates: start: 20170612, end: 20170612
  3. ALCOVER [Suspect]
     Active Substance: SODIUM OXYBATE
     Indication: PRODUCT USED FOR UNKNOWN INDICATION
     Dosage: 2 DF, SINGLE, VIAL
     Route: 048
     Dates: start: 20170612, end: 20170612
  4. RIVOTRIL [Suspect]
     Active Substance: CLONAZEPAM
     Indication: PRODUCT USED FOR UNKNOWN INDICATION
     Dosage: 1 DF, SINGLE, UNIT
     Route: 048
     Dates: start: 20170612, end: 20170612
  5. ANTABUSE [Suspect]
     Active Substance: DISULFIRAM
     Indication: PRODUCT USED FOR UNKNOWN INDICATION
     Dosage: 400 MG, SINGLE
     Route: 048
     Dates: start: 20170612, end: 20170612

REACTIONS (6)
  - Coma [Unknown]
  - Toxicity to various agents [Unknown]
  - Intentional self-injury [Unknown]
  - Toxicologic test abnormal [Unknown]
  - Coma scale abnormal [Unknown]
  - Drug abuse [Unknown]

NARRATIVE: CASE EVENT DATE: 20170612
